FAERS Safety Report 25000018 (Version 1)
Quarter: 2025Q1

REPORT INFORMATION
  Report Type: Spontaneous
  Country: US (occurrence: US)
  Receive Date: 20250222
  Receipt Date: 20250222
  Transmission Date: 20250408
  Serious: No
  Sender: SANOFI AVENTIS
  Company Number: US-SA-2025SA049240

PATIENT
  Sex: Female
  Weight: 100 kg

DRUGS (29)
  1. DUPIXENT [Suspect]
     Active Substance: DUPILUMAB
     Dosage: 300 MG, QOW
     Route: 058
  2. SODIUM CHLORIDE [Concomitant]
     Active Substance: SODIUM CHLORIDE
  3. LIDOCAINE [Concomitant]
     Active Substance: LIDOCAINE
  4. EPINEPHRINE [Concomitant]
     Active Substance: EPINEPHRINE
  5. PROLASTIN [Concomitant]
     Active Substance: .ALPHA.1-PROTEINASE INHIBITOR HUMAN
  6. CALCIUM [Concomitant]
     Active Substance: CALCIUM
  7. VITAMIN D3 [Concomitant]
     Active Substance: CHOLECALCIFEROL
  8. PROLASTIN [Concomitant]
     Active Substance: .ALPHA.1-PROTEINASE INHIBITOR HUMAN
  9. CLONAZEPAM [Concomitant]
     Active Substance: CLONAZEPAM
  10. CLONAZEPAM [Concomitant]
     Active Substance: CLONAZEPAM
  11. TRIAMCINOLONE ACETONIDE [Concomitant]
     Active Substance: TRIAMCINOLONE ACETONIDE
  12. METFORMIN HYDROCHLORIDE [Concomitant]
     Active Substance: METFORMIN HYDROCHLORIDE
  13. TRAMADOL HCL [Concomitant]
     Active Substance: TRAMADOL HYDROCHLORIDE
  14. SUMATRIPTAN SUCCINATE [Concomitant]
     Active Substance: SUMATRIPTAN SUCCINATE
  15. ESTRADIOL [Concomitant]
     Active Substance: ESTRADIOL
  16. VENTOLIN HFA [Concomitant]
     Active Substance: ALBUTEROL SULFATE
  17. FAMOTIDINE [Concomitant]
     Active Substance: FAMOTIDINE
  18. ALBUTEROL SULFATE [Concomitant]
     Active Substance: ALBUTEROL SULFATE
  19. HYDROXYZINE HYDROCHLORIDE [Concomitant]
     Active Substance: HYDROXYZINE HYDROCHLORIDE
  20. SERTRALINE HYDROCHLORIDE [Concomitant]
     Active Substance: SERTRALINE HYDROCHLORIDE
  21. ASPIRIN [Concomitant]
     Active Substance: ASPIRIN
  22. PANTOPRAZOLE SODIUM [Concomitant]
     Active Substance: PANTOPRAZOLE SODIUM
  23. CEFDINIR [Concomitant]
     Active Substance: CEFDINIR
  24. ATORVASTATIN CALCIUM [Concomitant]
     Active Substance: ATORVASTATIN CALCIUM
  25. PREDNISONE [Concomitant]
     Active Substance: PREDNISONE
  26. GABAPENTIN [Concomitant]
     Active Substance: GABAPENTIN
  27. GABAPENTIN [Concomitant]
     Active Substance: GABAPENTIN
  28. ONDANSETRON HYDROCHLORIDE [Concomitant]
     Active Substance: ONDANSETRON HYDROCHLORIDE
  29. FLUCONAZOLE [Concomitant]
     Active Substance: FLUCONAZOLE

REACTIONS (1)
  - Cough [Unknown]
